FAERS Safety Report 12335651 (Version 1)
Quarter: 2016Q2

REPORT INFORMATION
  Report Type: Spontaneous
  Country: ES (occurrence: ES)
  Receive Date: 20160505
  Receipt Date: 20160505
  Transmission Date: 20160815
  Serious: Yes (Other)
  Sender: FDA-Public Use
  Company Number: ES-ROCHE-1752075

PATIENT
  Age: 80 Year
  Sex: Female
  Weight: 49 kg

DRUGS (1)
  1. BONVIVA [Suspect]
     Active Substance: IBANDRONATE SODIUM
     Indication: OSTEOPOROSIS
     Route: 048
     Dates: start: 201512, end: 201604

REACTIONS (2)
  - Erythema [Recovering/Resolving]
  - Parophthalmia [Recovering/Resolving]

NARRATIVE: CASE EVENT DATE: 201512
